FAERS Safety Report 10233149 (Version 2)
Quarter: 2014Q2

REPORT INFORMATION
  Report Type: Spontaneous
  Country: FR (occurrence: FR)
  Receive Date: 20140612
  Receipt Date: 20140626
  Transmission Date: 20141212
  Serious: Yes (Disabling)
  Sender: FDA-Public Use
  Company Number: FR-PFIZER INC-2014156686

PATIENT
  Age: 72 Year
  Sex: Female
  Weight: 69 kg

DRUGS (10)
  1. TAZOCILLINE [Suspect]
     Indication: PNEUMONIA PSEUDOMONAL
     Dosage: 3 G, 4X/DAY
     Route: 042
     Dates: start: 20131231, end: 20140114
  2. NEBCINE [Suspect]
     Indication: PNEUMONIA PSEUDOMONAL
     Dosage: 300 MG, DAILY
     Route: 042
     Dates: start: 20131231, end: 20140106
  3. NEBCINE [Suspect]
     Dosage: 400 MG, DAILY
     Route: 042
     Dates: start: 20140107, end: 20140114
  4. INEXIUM 20 [Concomitant]
  5. GAVISCON [Concomitant]
  6. SERETIDE [Concomitant]
  7. SPIRIVA [Concomitant]
  8. PREVISCAN [Concomitant]
  9. VENTOLINE [Concomitant]
  10. AUGMENTIN [Concomitant]
     Indication: INFECTION
     Dosage: 1 G, 3X/DAY
     Dates: start: 20131218

REACTIONS (2)
  - Condition aggravated [Recovered/Resolved with Sequelae]
  - Hypoacusis [Recovered/Resolved with Sequelae]
